FAERS Safety Report 13911554 (Version 2)
Quarter: 2017Q3

REPORT INFORMATION
  Report Type: Spontaneous
  Country: JP (occurrence: JP)
  Receive Date: 20170828
  Receipt Date: 20170905
  Transmission Date: 20171127
  Serious: Yes (Death)
  Sender: FDA-Public Use
  Company Number: JP-ALLERGAN-1747726US

PATIENT
  Age: 68 Year
  Sex: Male

DRUGS (6)
  1. BOTOX [Suspect]
     Active Substance: ONABOTULINUMTOXINA
     Dosage: 50 UNITS, SINGLE
     Route: 030
     Dates: start: 20170628, end: 20170628
  2. BOTOX [Suspect]
     Active Substance: ONABOTULINUMTOXINA
     Dosage: 50 UNITS, SINGLE
     Route: 030
     Dates: start: 20170628, end: 20170628
  3. BOTOX [Suspect]
     Active Substance: ONABOTULINUMTOXINA
     Dosage: 50 UNITS, SINGLE
     Route: 030
     Dates: start: 20170628, end: 20170628
  4. BOTOX [Suspect]
     Active Substance: ONABOTULINUMTOXINA
     Dosage: 50 UNITS, SINGLE
     Route: 030
     Dates: start: 20170628, end: 20170628
  5. BOTOX [Suspect]
     Active Substance: ONABOTULINUMTOXINA
     Dosage: 50 UNITS, SINGLE
     Route: 030
     Dates: start: 20170628, end: 20170628
  6. BOTOX [Suspect]
     Active Substance: ONABOTULINUMTOXINA
     Indication: MUSCLE SPASMS
     Dosage: 50 UNITS, SINGLE
     Route: 030
     Dates: start: 20170628, end: 20170628

REACTIONS (2)
  - Drug administered at inappropriate site [Unknown]
  - Myocardial ischaemia [Fatal]

NARRATIVE: CASE EVENT DATE: 201408
